FAERS Safety Report 18610122 (Version 2)
Quarter: 2020Q4

REPORT INFORMATION
  Report Type: Spontaneous
  Country: JP (occurrence: JP)
  Receive Date: 20201214
  Receipt Date: 20201224
  Transmission Date: 20210114
  Serious: Yes (Death, Hospitalization)
  Sender: FDA-Public Use
  Company Number: NVSJ2020JP013545

PATIENT
  Age: 95 Year
  Sex: Female

DRUGS (1)
  1. ENTRESTO [Suspect]
     Active Substance: SACUBITRIL\VALSARTAN
     Indication: CARDIAC FAILURE CHRONIC
     Dosage: 100 MG
     Route: 048
     Dates: start: 20201105

REACTIONS (3)
  - Sepsis [Fatal]
  - Dysphagia [Fatal]
  - Cardiac failure [Fatal]
